FAERS Safety Report 5311925-7 (Version None)
Quarter: 2007Q2

REPORT INFORMATION
  Report Type: 
  Country: None (occurrence: None)
  Receive Date: 20070430
  Receipt Date: 20060327
  Transmission Date: 20071010
  Serious: No
  Sender: FDA-Public Use
  Company Number: 2006UW05318

PATIENT
  Age: 35 Year
  Sex: Female

DRUGS (1)
  1. NEXIUM [Suspect]
     Dosage: FIVE 40 MG CAPSULES
     Route: 048
     Dates: start: 20060322

REACTIONS (4)
  - ACCIDENTAL OVERDOSE [None]
  - FATIGUE [None]
  - MEDICATION ERROR [None]
  - NAUSEA [None]
